FAERS Safety Report 6163980-2 (Version None)
Quarter: 2009Q2

REPORT INFORMATION
  Report Type: 
  Country: None (occurrence: None)
  Receive Date: 20090422
  Receipt Date: 20090416
  Transmission Date: 20091009
  Serious: Yes (Death, Hospitalization)
  Sender: FDA-Public Use
  Company Number: CA-PFIZER INC-2008156910

PATIENT

DRUGS (3)
  1. *ERLOTINIB [Suspect]
     Indication: LUNG NEOPLASM MALIGNANT
     Dosage: 150 MG, 1X/DAY
     Route: 048
     Dates: start: 20081104, end: 20081203
  2. BLINDED *PLACEBO [Suspect]
     Indication: LUNG NEOPLASM MALIGNANT
     Dosage: 1 TABLET, 1X/DAY
     Route: 048
     Dates: start: 20081104, end: 20081203
  3. BLINDED SUNITINIB MALATE [Suspect]
     Indication: LUNG NEOPLASM MALIGNANT
     Dosage: 1 TABLET, 1X/DAY
     Route: 048
     Dates: start: 20081104, end: 20081203

REACTIONS (2)
  - CEREBRAL HAEMORRHAGE [None]
  - DYSPNOEA [None]
